FAERS Safety Report 4776782-6 (Version None)
Quarter: 2005Q3

REPORT INFORMATION
  Report Type: 
  Country: None (occurrence: None)
  Receive Date: 20050923
  Receipt Date: 20050915
  Transmission Date: 20060218
  Serious: Yes (Death)
  Sender: FDA-Public Use
  Company Number: FR-BRISTOL-MYERS SQUIBB COMPANY-13111695

PATIENT
  Age: 50 Year
  Sex: Female

DRUGS (3)
  1. ABILIFY [Suspect]
     Indication: SCHIZOPHRENIA
     Route: 048
     Dates: start: 20050601
  2. LOXAPAC [Concomitant]
     Indication: AGITATION
  3. LOXAPAC [Concomitant]
     Indication: PATIENT ISOLATION

REACTIONS (1)
  - SEPSIS [None]
